FAERS Safety Report 19586304 (Version 1)
Quarter: 2021Q3

REPORT INFORMATION
  Report Type: Spontaneous
  Country: CN (occurrence: CN)
  Receive Date: 20210720
  Receipt Date: 20210720
  Transmission Date: 20211014
  Serious: Yes (Other)
  Sender: FDA-Public Use
  Company Number: NVSC2021CN162613

PATIENT
  Age: 40 Year
  Sex: Male

DRUGS (4)
  1. SODIUM HYALURONATE [Suspect]
     Active Substance: HYALURONATE SODIUM
     Indication: PRODUCT USED FOR UNKNOWN INDICATION
     Dosage: UNK
     Route: 065
  2. TOBRADEX [Suspect]
     Active Substance: DEXAMETHASONE\TOBRAMYCIN
     Indication: GLAUCOMA
  3. TOBRADEX [Suspect]
     Active Substance: DEXAMETHASONE\TOBRAMYCIN
     Indication: CONJUNCTIVITIS
     Dosage: UNK
     Route: 065
     Dates: start: 20170208
  4. ACICLOVIR [Concomitant]
     Active Substance: ACYCLOVIR
     Indication: PRODUCT USED FOR UNKNOWN INDICATION
     Dosage: UNK
     Route: 065

REACTIONS (8)
  - Eyelid ptosis [Unknown]
  - Eye swelling [Unknown]
  - Diplopia [Unknown]
  - Xerophthalmia [Unknown]
  - Pain [Unknown]
  - Headache [Unknown]
  - Tolosa-Hunt syndrome [Unknown]
  - Asthenopia [Unknown]

NARRATIVE: CASE EVENT DATE: 20170427
